FAERS Safety Report 13446891 (Version 1)
Quarter: 2017Q2

REPORT INFORMATION
  Report Type: Spontaneous
  Country: US (occurrence: US)
  Receive Date: 20170414
  Receipt Date: 20170414
  Transmission Date: 20170830
  Serious: Yes (Other)
  Sender: FDA-Public Use
  Company Number: None

PATIENT
  Age: 73 Year
  Sex: Male
  Weight: 67.5 kg

DRUGS (6)
  1. VIT B - GUMMIES [Concomitant]
  2. TRIUMEQ [Concomitant]
     Active Substance: ABACAVIR SULFATE\DOLUTEGRAVIR SODIUM\LAMIVUDINE
  3. LOSARTIN [Concomitant]
     Active Substance: LOSARTAN
  4. VITAMIN C [Concomitant]
     Active Substance: ASCORBIC ACID
  5. SILODISIN [Suspect]
     Active Substance: SILODOSIN
     Indication: BENIGN PROSTATIC HYPERPLASIA
     Dosage: ?          QUANTITY:1 CAPSULE(S);?
     Route: 048
     Dates: start: 20170405, end: 20170414
  6. VITAMIN B12 [Concomitant]
     Active Substance: CYANOCOBALAMIN

REACTIONS (4)
  - Dysuria [None]
  - Drug ineffective [None]
  - Urinary tract obstruction [None]
  - Product substitution issue [None]

NARRATIVE: CASE EVENT DATE: 20170411
